APPROVED DRUG PRODUCT: CARBOPLATIN
Active Ingredient: CARBOPLATIN
Strength: 50MG/5ML (10MG/ML)
Dosage Form/Route: INJECTABLE;INTRAVENOUS
Application: A077432 | Product #001
Applicant: FRESENIUS KABI USA LLC
Approved: Sep 29, 2006 | RLD: No | RS: No | Type: DISCN